FAERS Safety Report 6377669-8 (Version None)
Quarter: 2009Q4

REPORT INFORMATION
  Report Type: 
  Country: None (occurrence: None)
  Receive Date: 20090925
  Receipt Date: 20090909
  Transmission Date: 20100525
  Serious: Yes (Hospitalization)
  Sender: FDA-Public Use
  Company Number: PHHY2008JP22574

PATIENT
  Age: 28 Year
  Sex: Female

DRUGS (5)
  1. LUDIOMIL [Suspect]
     Indication: DEPRESSION
     Dosage: 10 MG, QD
     Route: 048
     Dates: start: 20070911, end: 20071012
  2. DEPAKENE [Suspect]
     Indication: DEPRESSION
     Dosage: 100 MG, BID
     Route: 048
     Dates: start: 20070911, end: 20071012
  3. GLYSENNID [Suspect]
     Dosage: 3 DF, QHS
     Route: 048
     Dates: start: 20070911, end: 20071012
  4. SILECE [Suspect]
     Indication: DEPRESSION
     Dosage: 2 DF, QHS
     Route: 048
     Dates: start: 20070911
  5. BROTIZOLAM [Suspect]
     Indication: DEPRESSION
     Dosage: 2 DF, QHS
     Route: 048
     Dates: start: 20070911

REACTIONS (8)
  - ALANINE AMINOTRANSFERASE INCREASED [None]
  - ASPARTATE AMINOTRANSFERASE INCREASED [None]
  - DECREASED ACTIVITY [None]
  - FATIGUE [None]
  - GAMMA-GLUTAMYLTRANSFERASE INCREASED [None]
  - LIVER DISORDER [None]
  - MALAISE [None]
  - MENTAL IMPAIRMENT [None]
